FAERS Safety Report 5374266-8 (Version None)
Quarter: 2007Q2

REPORT INFORMATION
  Report Type: 
  Country: None (occurrence: None)
  Receive Date: 20070629
  Receipt Date: 20070529
  Transmission Date: 20071010
  Serious: Yes (Other)
  Sender: FDA-Public Use
  Company Number: IE-ROCHE-337440

PATIENT
  Age: 27 Year
  Sex: Male

DRUGS (4)
  1. LARIAM [Suspect]
     Indication: MALARIA PROPHYLAXIS
     Route: 048
     Dates: start: 20001201
  2. ANTIDEPRESSANTS NOS [Concomitant]
     Dates: start: 20001201
  3. FLAGYL [Concomitant]
     Route: 048
     Dates: start: 20001220, end: 20001227
  4. UNKNOWN MEDICATION [Concomitant]
     Route: 048

REACTIONS (6)
  - FLASHBACK [None]
  - HALLUCINATION [None]
  - HALLUCINATION, AUDITORY [None]
  - HALLUCINATION, OLFACTORY [None]
  - HOMICIDE [None]
  - PARANOIA [None]
